FAERS Safety Report 5104838-7 (Version None)
Quarter: 2006Q3

REPORT INFORMATION
  Report Type: 
  Country: None (occurrence: None)
  Receive Date: 20060914
  Receipt Date: 20060503
  Transmission Date: 20061208
  Serious: Yes (Death, Life-Threatening, Disabling)
  Sender: FDA-Public Use
  Company Number: US-GLAXOSMITHKLINE-A0604212A

PATIENT
  Age: 33 Year
  Sex: Female
  Weight: 63.6 kg

DRUGS (6)
  1. LAMICTAL [Suspect]
     Indication: BIPOLAR DISORDER
     Dosage: 25MG PER DAY
     Route: 048
     Dates: start: 20060303
  2. CAFFEINE [Concomitant]
  3. ALCOHOL [Concomitant]
  4. PROZAC [Concomitant]
     Dosage: 60MG PER DAY
     Route: 048
  5. ZYPREXA [Concomitant]
     Dosage: 2.5MG PER DAY
     Route: 048
  6. MIRAPEX [Concomitant]
     Dosage: .25MG PER DAY
     Route: 048

REACTIONS (17)
  - AGITATION [None]
  - ALCOHOL USE [None]
  - COMPLETED SUICIDE [None]
  - DECREASED APPETITE [None]
  - DECREASED INTEREST [None]
  - DEPRESSED MOOD [None]
  - DISTURBANCE IN ATTENTION [None]
  - DRUG LEVEL DECREASED [None]
  - EXTRAPYRAMIDAL DISORDER [None]
  - IRRITABILITY [None]
  - LABORATORY TEST INTERFERENCE [None]
  - LIBIDO DECREASED [None]
  - MOOD SWINGS [None]
  - MUSCULOSKELETAL STIFFNESS [None]
  - ROAD TRAFFIC ACCIDENT [None]
  - SLEEP DISORDER [None]
  - TREMOR [None]
